FAERS Safety Report 6237230-2 (Version None)
Quarter: 2009Q2

REPORT INFORMATION
  Report Type: 
  Country: None (occurrence: None)
  Receive Date: 20090619
  Receipt Date: 20090618
  Transmission Date: 20091009
  Serious: Yes (Hospitalization)
  Sender: FDA-Public Use
  Company Number: ES-BRISTOL-MYERS SQUIBB COMPANY-14670855

PATIENT
  Age: 75 Year
  Sex: Male

DRUGS (6)
  1. METFORMIN HCL [Suspect]
     Indication: DIABETES MELLITUS
     Route: 065
     Dates: start: 19951101
  2. BYETTA [Suspect]
     Indication: DIABETES MELLITUS
     Route: 065
     Dates: start: 20070917, end: 20071005
  3. AMARYL [Suspect]
     Indication: DIABETES MELLITUS
     Route: 065
     Dates: start: 20070403, end: 20071005
  4. SPIRO [Concomitant]
     Indication: HYPERTENSION
     Dates: start: 20040201
  5. ENALAPRIL [Concomitant]
     Indication: HYPERTENSION
     Dates: start: 20040201
  6. ASTUDAL [Concomitant]
     Indication: HYPERTENSION
     Dates: start: 20040201

REACTIONS (1)
  - PANCREATITIS ACUTE [None]
